FAERS Safety Report 5503211-7 (Version None)
Quarter: 2007Q4

REPORT INFORMATION
  Report Type: 
  Country: None (occurrence: None)
  Receive Date: 20071031
  Receipt Date: 20071022
  Transmission Date: 20080405
  Serious: Yes (Hospitalization)
  Sender: FDA-Public Use
  Company Number: US-AMGEN-STX245485

PATIENT
  Sex: Male

DRUGS (10)
  1. ENBREL [Suspect]
     Indication: PSORIATIC ARTHROPATHY
     Route: 058
     Dates: start: 20070622, end: 20071001
  2. ENBREL [Suspect]
     Indication: PSORIASIS
  3. DILTIAZEM [Concomitant]
     Dates: start: 20040101
  4. TERAZOSIN HCL [Concomitant]
     Dates: start: 20040101
  5. PAXIL [Concomitant]
     Dates: start: 20040101
  6. FLOMAX [Concomitant]
     Dates: start: 20070710
  7. AVODART [Concomitant]
     Dates: start: 20070710
  8. OPIOIDS [Concomitant]
  9. OXYCODONE HCL [Concomitant]
  10. OXYCODONE HCL [Concomitant]

REACTIONS (3)
  - ANKLE FRACTURE [None]
  - FALL [None]
  - HIP FRACTURE [None]
